FAERS Safety Report 4343620-5 (Version None)
Quarter: 2004Q2

REPORT INFORMATION
  Report Type: 
  Country: None (occurrence: None)
  Receive Date: 20040419
  Receipt Date: 20040414
  Transmission Date: 20050107
  Serious: Yes (Hospitalization)
  Sender: FDA-Public Use
  Company Number: 200403615

PATIENT
  Sex: Female

DRUGS (5)
  1. IMODIUM A-D [Suspect]
     Indication: DIARRHOEA
     Dosage: 2 MG, TWICE, PO
     Route: 048
     Dates: start: 20040411, end: 20040411
  2. IMODIUM A-D [Suspect]
     Indication: MUSCLE CRAMP
     Dosage: 2 MG, TWICE, PO
     Route: 048
     Dates: start: 20040411, end: 20040411
  3. KAOPECTATE (ATTAPULGITE) [Suspect]
     Indication: DIARRHOEA
     Dosage: 4 TBSP, TWICE, PO
     Route: 048
     Dates: start: 20040410, end: 20040410
  4. KAOPECTATE (ATTAPULGITE) [Suspect]
     Indication: MUSCLE CRAMP
     Dosage: 4 TBSP, TWICE, PO
     Route: 048
     Dates: start: 20040410, end: 20040410
  5. ATACAND [Concomitant]

REACTIONS (6)
  - DEHYDRATION [None]
  - DRUG INEFFECTIVE [None]
  - FEELING ABNORMAL [None]
  - GASTROENTERITIS [None]
  - INSOMNIA [None]
  - LOSS OF CONSCIOUSNESS [None]
